FAERS Safety Report 10993617 (Version 2)
Quarter: 2015Q2

REPORT INFORMATION
  Report Type: Spontaneous
  Country: IT (occurrence: None)
  Receive Date: 20150403
  Receipt Date: 20150508
  Transmission Date: 20150821
  Serious: Yes (Other)
  Sender: FDA-Public Use
  Company Number: 2803743

PATIENT
  Age: 55 Year
  Sex: Female
  Weight: 63 kg

DRUGS (14)
  1. LETROZOLE. [Concomitant]
     Active Substance: LETROZOLE
  2. PANTOPRAZOLE [Concomitant]
     Active Substance: PANTOPRAZOLE SODIUM
  3. ATORVASTATIN [Concomitant]
     Active Substance: ATORVASTATIN
  4. DELTACORTENE [Concomitant]
     Active Substance: PREDNISONE
  5. FLECAINIDE [Concomitant]
     Active Substance: FLECAINIDE
  6. NEBIVOLOL [Concomitant]
     Active Substance: NEBIVOLOL
  7. PLASIL [Concomitant]
     Active Substance: METOCLOPRAMIDE HYDROCHLORIDE
  8. DOXAZOSIN [Concomitant]
     Active Substance: DOXAZOSIN\DOXAZOSIN MESYLATE
  9. CARDIOASPIRIN [Concomitant]
     Active Substance: ASPIRIN
  10. LOSARTAN [Concomitant]
     Active Substance: LOSARTAN
  11. DISSENTEN [Concomitant]
     Active Substance: LOPERAMIDE HYDROCHLORIDE
  12. DOCETAXEL. [Suspect]
     Active Substance: DOCETAXEL
     Indication: INVASIVE DUCTAL BREAST CARCINOMA
     Dosage: 125 MG MILLIGRAMSS, CYCLICAL
     Route: 041
     Dates: start: 20150318, end: 20150318
  13. LERCANIDIPINE [Concomitant]
     Active Substance: LERCANIDIPINE
  14. ZOFRAN [Concomitant]
     Active Substance: ONDANSETRON HYDROCHLORIDE

REACTIONS (2)
  - Throat irritation [None]
  - Productive cough [None]

NARRATIVE: CASE EVENT DATE: 20150318
